FAERS Safety Report 8789389 (Version 1)
Quarter: 2012Q4

REPORT INFORMATION
  Report Type: Spontaneous
  Country: US (occurrence: None)
  Receive Date: 20120910
  Receipt Date: 20120910
  Transmission Date: 20130627
  Serious: Yes (Hospitalization)
  Sender: FDA-Public Use
  Company Number: None

PATIENT
  Sex: Male
  Weight: 103 kg

DRUGS (1)
  1. BLEOMYCIN [Suspect]

REACTIONS (4)
  - Dyspnoea [None]
  - Disorientation [None]
  - Pneumonitis [None]
  - General physical health deterioration [None]
